FAERS Safety Report 6840257-0 (Version None)
Quarter: 2010Q3

REPORT INFORMATION
  Report Type: 
  Country: None (occurrence: None)
  Receive Date: 20100714
  Receipt Date: 20100705
  Transmission Date: 20110219
  Serious: Yes (Death, Hospitalization)
  Sender: FDA-Public Use
  Company Number: PHHO2010NL10123

PATIENT
  Sex: Male
  Weight: 70 kg

DRUGS (13)
  1. MYCOPHENOLIC ACID [Suspect]
     Indication: STEM CELL TRANSPLANT
     Dosage: 750 MG, TID
     Route: 042
     Dates: start: 20100611
  2. SANDIMMUNE [Suspect]
     Indication: STEM CELL TRANSPLANT
     Dosage: 125 MG, BID
     Route: 042
     Dates: start: 20100611
  3. PREDNISOLONE [Suspect]
     Indication: STEM CELL TRANSPLANT
     Dosage: 75 MG, BID
     Route: 042
     Dates: start: 20100611
  4. ETANERCEPT [Concomitant]
  5. ACYCLOVIR [Concomitant]
  6. ALENDRONIC ACID [Concomitant]
  7. AMLODIPINE [Concomitant]
     Indication: HYPERTENSION
  8. ATENOLOL [Concomitant]
     Indication: HYPERTENSION
  9. INSULIN [Concomitant]
  10. CIPROFLOXACIN [Concomitant]
  11. COTRIM [Concomitant]
  12. ESOMEPRAZOLE MAGNESIUM [Concomitant]
  13. IMIPENEM [Concomitant]

REACTIONS (9)
  - ABDOMINAL SEPSIS [None]
  - DIARRHOEA [None]
  - GASTROENTERITIS BACTERIAL [None]
  - GRAFT VERSUS HOST DISEASE [None]
  - HAEMATOCHEZIA [None]
  - HYPOTENSION [None]
  - LUNG INFILTRATION [None]
  - RENAL FAILURE [None]
  - RESPIRATORY FAILURE [None]
